FAERS Safety Report 8037210-0 (Version None)
Quarter: 2012Q1

REPORT INFORMATION
  Report Type: 
  Country: None (occurrence: None)
  Receive Date: 20120109
  Receipt Date: 20111226
  Transmission Date: 20120608
  Serious: Yes (Other)
  Sender: FDA-Public Use
  Company Number: 1150217

PATIENT
  Age: 71 Year
  Sex: Female

DRUGS (8)
  1. SUCCINYLCHOLINE CHLORIDE [Concomitant]
  2. (REMIFENTANIL) [Concomitant]
  3. HEPARIN SODIUM [Concomitant]
  4. FENTANYL CITRATE [Concomitant]
  5. PHENYLEPHRINE HCL [Concomitant]
  6. PROPOFOL [Concomitant]
  7. (OXYGEN) [Concomitant]
  8. NOREPINEPHRINE BITARTRATE [Suspect]
     Indication: HYPERTENSION
     Dosage: 4 MCG/MIN : 8 MCG/MIN INTRAVENOUS DRIP
     Route: 041

REACTIONS (2)
  - CEREBRAL HYPOPERFUSION [None]
  - SOMATOSENSORY EVOKED POTENTIALS ABNORMAL [None]
